FAERS Safety Report 17947679 (Version 1)
Quarter: 2020Q2

REPORT INFORMATION
  Report Type: Spontaneous
  Country: US (occurrence: US)
  Receive Date: 20200625
  Receipt Date: 20200625
  Transmission Date: 20200714
  Serious: No
  Sender: FDA-Public Use
  Company Number: US-NOVOPROD-708124

PATIENT
  Age: 80 Year
  Sex: Female

DRUGS (1)
  1. OZEMPIC [Suspect]
     Active Substance: SEMAGLUTIDE
     Indication: PRODUCT USED FOR UNKNOWN INDICATION
     Dosage: UNK
     Route: 058

REACTIONS (9)
  - Vaginal haemorrhage [Unknown]
  - Gingival bleeding [Unknown]
  - Ocular hyperaemia [Recovered/Resolved]
  - Tooth loss [Unknown]
  - Dry skin [Unknown]
  - Tooth disorder [Unknown]
  - Joint noise [Unknown]
  - Rash [Unknown]
  - Ocular hyperaemia [Recovered/Resolved]

NARRATIVE: CASE EVENT DATE: 2019
